FAERS Safety Report 16742211 (Version 1)
Quarter: 2019Q3

REPORT INFORMATION
  Report Type: Spontaneous
  Country: US (occurrence: US)
  Receive Date: 20190826
  Receipt Date: 20190826
  Transmission Date: 20191005
  Serious: Yes (Other)
  Sender: FDA-Public Use
  Company Number: US-GILEAD-2019-0425022

PATIENT
  Age: 68 Year
  Sex: Male
  Weight: 121.45 kg

DRUGS (5)
  1. CEFEPIME [Concomitant]
     Active Substance: CEFEPIME HYDROCHLORIDE
  2. YESCARTA [Suspect]
     Active Substance: AXICABTAGENE CILOLEUCEL
     Indication: DIFFUSE LARGE B-CELL LYMPHOMA REFRACTORY
     Dosage: UNK
     Route: 042
     Dates: start: 20190304, end: 20190304
  3. VANCOMYCIN [Concomitant]
     Active Substance: VANCOMYCIN
  4. NEUPOGEN [Concomitant]
     Active Substance: FILGRASTIM
  5. LOVENOX [LEVOFLOXACIN] [Concomitant]

REACTIONS (1)
  - Cytokine release syndrome [Recovered/Resolved]

NARRATIVE: CASE EVENT DATE: 20190308
